FAERS Safety Report 10461895 (Version 1)
Quarter: 2014Q3

REPORT INFORMATION
  Report Type: Spontaneous
  Country: US (occurrence: None)
  Receive Date: 20140916
  Receipt Date: 20140916
  Transmission Date: 20150326
  Serious: Yes (Other)
  Sender: FDA-Public Use
  Company Number: 2009S1006461

PATIENT
  Age: 62 Year
  Sex: Female

DRUGS (9)
  1. ASPIRIN. [Concomitant]
     Active Substance: ASPIRIN
  2. ZIAC [Concomitant]
     Active Substance: BISOPROLOL FUMARATE\HYDROCHLOROTHIAZIDE
  3. CELEBREX [Concomitant]
     Active Substance: CELECOXIB
  4. PHOSPHO-SODA [Suspect]
     Active Substance: SODIUM PHOSPHATE, DIBASIC\SODIUM PHOSPHATE, MONOBASIC
     Indication: COLONOSCOPY
     Route: 048
     Dates: start: 20030107
  5. LISINOPRIL AND HYDROCHLOROTHIAZIDE [Concomitant]
     Active Substance: HYDROCHLOROTHIAZIDE\LISINOPRIL
  6. PRILOSEC [Concomitant]
     Active Substance: OMEPRAZOLE MAGNESIUM
  7. VERAPAMIL [Concomitant]
     Active Substance: VERAPAMIL HYDROCHLORIDE
  8. LIPITOR [Concomitant]
     Active Substance: ATORVASTATIN CALCIUM
  9. CARDIZEM CD [Concomitant]
     Active Substance: DILTIAZEM HYDROCHLORIDE

REACTIONS (24)
  - Dyspepsia [None]
  - Paraesthesia [None]
  - Respiratory tract infection [None]
  - Aphagia [None]
  - Breast cyst [None]
  - Renal artery stenosis [None]
  - Colon adenoma [None]
  - Renal failure chronic [None]
  - Asthenia [None]
  - Pulmonary mass [None]
  - Renal failure acute [None]
  - Nephrogenic anaemia [None]
  - Nausea [None]
  - Vision blurred [None]
  - Palpitations [None]
  - Hypoaesthesia [None]
  - Malaise [None]
  - Headache [None]
  - Dehydration [None]
  - Fatigue [None]
  - Dyspnoea exertional [None]
  - Diarrhoea [None]
  - Abdominal distension [None]
  - Polyp [None]

NARRATIVE: CASE EVENT DATE: 200301
